FAERS Safety Report 5091487-2 (Version None)
Quarter: 2006Q3

REPORT INFORMATION
  Report Type: 
  Country: None (occurrence: None)
  Receive Date: 20060829
  Receipt Date: 20060824
  Transmission Date: 20061208
  Serious: Yes (Other)
  Sender: FDA-Public Use
  Company Number: GB-GLAXOSMITHKLINE-B0436117A

PATIENT
  Age: 59 Year
  Sex: Female
  Weight: 57.2 kg

DRUGS (5)
  1. ONDANSETRON HCL [Suspect]
     Indication: NAUSEA
     Dosage: 4MG PER DAY
     Route: 042
     Dates: start: 20060731, end: 20060801
  2. CIPROFLOXACIN [Concomitant]
     Indication: DIVERTICULITIS
     Dosage: 400MG TWICE PER DAY
     Route: 042
     Dates: start: 20060727
  3. CLEXANE [Concomitant]
     Indication: ATRIAL FIBRILLATION
     Route: 058
     Dates: start: 20060730
  4. CYCLIZINE [Concomitant]
     Indication: VOMITING
     Dosage: 50MG THREE TIMES PER DAY
     Route: 048
     Dates: start: 20060731
  5. METRONIDAZOLE [Concomitant]
     Indication: DIVERTICULITIS
     Dosage: 500MG THREE TIMES PER DAY
     Route: 042
     Dates: start: 20060727

REACTIONS (2)
  - DYSKINESIA [None]
  - FEAR [None]
